FAERS Safety Report 25286271 (Version 2)
Quarter: 2025Q2

REPORT INFORMATION
  Report Type: Spontaneous
  Country: IN (occurrence: IN)
  Receive Date: 20250509
  Receipt Date: 20250520
  Transmission Date: 20250716
  Serious: Yes (Other)
  Sender: CADILA
  Company Number: IN-CPL-005269

PATIENT
  Age: 6 Decade
  Sex: Male

DRUGS (1)
  1. METRONIDAZOLE [Suspect]
     Active Substance: METRONIDAZOLE
     Indication: Liver abscess

REACTIONS (3)
  - Toxic encephalopathy [Recovering/Resolving]
  - Polyneuropathy [Recovering/Resolving]
  - Toxicity to various agents [Unknown]
